FAERS Safety Report 16577430 (Version 1)
Quarter: 2019Q3

REPORT INFORMATION
  Report Type: Spontaneous
  Country: SE (occurrence: SE)
  Receive Date: 20190716
  Receipt Date: 20190716
  Transmission Date: 20191004
  Serious: Yes (Other)
  Sender: FDA-Public Use
  Company Number: SE-PFIZER INC-2019295685

PATIENT
  Age: 37 Year
  Sex: Female

DRUGS (1)
  1. CABASER [Suspect]
     Active Substance: CABERGOLINE
     Indication: PROLACTIN-PRODUCING PITUITARY TUMOUR
     Dosage: UNK
     Dates: end: 20110426

REACTIONS (4)
  - Chronotropic incompetence [Unknown]
  - Product use in unapproved indication [Unknown]
  - Off label use [Unknown]
  - Bradycardia [Unknown]

NARRATIVE: CASE EVENT DATE: 20110423
